FAERS Safety Report 9958344 (Version 3)
Quarter: 2014Q2

REPORT INFORMATION
  Report Type: Report from Study
  Country: GB (occurrence: GB)
  Receive Date: 20140305
  Receipt Date: 20140606
  Transmission Date: 20141212
  Serious: Yes (Other)
  Sender: FDA-Public Use
  Company Number: GB-ROCHE-1358696

PATIENT
  Age: 88 Year
  Sex: Female

DRUGS (7)
  1. RANIBIZUMAB [Suspect]
     Indication: AGE-RELATED MACULAR DEGENERATION
     Route: 050
     Dates: start: 20121107
  2. RANIBIZUMAB [Suspect]
     Route: 050
     Dates: start: 20131217
  3. RANIBIZUMAB [Suspect]
     Route: 050
     Dates: start: 20140114
  4. RANIBIZUMAB [Suspect]
     Route: 050
     Dates: start: 20140212
  5. RANIBIZUMAB [Suspect]
     Route: 050
     Dates: start: 20140312
  6. ACETYLSALICYLIC ACID [Concomitant]
     Route: 065
     Dates: start: 20030131
  7. ACETYLSALICYLIC ACID [Concomitant]
     Route: 065
     Dates: start: 20140118

REACTIONS (2)
  - Retinal haemorrhage [Recovered/Resolved]
  - Retinal pigment epithelial tear [Unknown]
